FAERS Safety Report 4659908-4 (Version None)
Quarter: 2005Q2

REPORT INFORMATION
  Report Type: 
  Country: None (occurrence: None)
  Receive Date: 20050502
  Receipt Date: 20050223
  Transmission Date: 20051028
  Serious: Yes (Life-Threatening, Other)
  Sender: FDA-Public Use
  Company Number: KDL118143

PATIENT
  Age: 65 Year
  Sex: Male

DRUGS (1)
  1. PROCRIT [Suspect]
     Indication: PREOPERATIVE CARE

REACTIONS (1)
  - PULMONARY EMBOLISM [None]
